FAERS Safety Report 15387598 (Version 1)
Quarter: 2018Q3

REPORT INFORMATION
  Report Type: Spontaneous
  Country: FR (occurrence: FR)
  Receive Date: 20180914
  Receipt Date: 20180914
  Transmission Date: 20181010
  Serious: Yes (Hospitalization)
  Sender: FDA-Public Use
  Company Number: FR-009507513-1809FRA001778

PATIENT
  Age: 33 Year
  Sex: Female

DRUGS (4)
  1. MENOPUR [Suspect]
     Active Substance: FOLLITROPIN\LUTEINIZING HORMONE
     Indication: CONTROLLED OVARIAN STIMULATION
     Dosage: 150 IU, QD
     Route: 058
     Dates: start: 20170114, end: 20170122
  2. ORGALUTRAN [Suspect]
     Active Substance: GANIRELIX ACETATE
     Indication: CONTROLLED OVARIAN STIMULATION
     Dosage: 0.25 MG, QD
     Route: 058
     Dates: start: 20170119, end: 20170122
  3. DECAPEPTYL (ACETATE) [Suspect]
     Active Substance: TRIPTORELIN ACETATE
     Indication: OVULATION INDUCTION
     Dosage: IN TOTAL
     Route: 058
     Dates: start: 20170123, end: 20170123
  4. GONADOTROPIN, CHORIONIC [Suspect]
     Active Substance: CHORIOGONADOTROPIN ALFA
     Indication: CONTROLLED OVARIAN STIMULATION
     Dosage: IN TOTAL
     Route: 065
     Dates: start: 20170123, end: 20170123

REACTIONS (4)
  - Pelvic fluid collection [Recovered/Resolved]
  - Ascites [Recovered/Resolved]
  - Ovarian hyperstimulation syndrome [Recovered/Resolved]
  - Abdominal pain [Recovered/Resolved]

NARRATIVE: CASE EVENT DATE: 20170125
